FAERS Safety Report 22345633 (Version 1)
Quarter: 2023Q2

REPORT INFORMATION
  Report Type: Spontaneous
  Country: US (occurrence: US)
  Receive Date: 20230519
  Receipt Date: 20230519
  Transmission Date: 20230721
  Serious: Yes (Hospitalization)
  Sender: FDA-Public Use
  Company Number: US-PFIZER INC-US-GBT-018103

PATIENT
  Age: 42 Year
  Sex: Female

DRUGS (3)
  1. OXBRYTA [Suspect]
     Active Substance: VOXELOTOR
     Indication: Sickle cell disease
     Dosage: 1500 MG, 1X/DAY
     Route: 048
     Dates: start: 20221013
  2. OXBRYTA [Suspect]
     Active Substance: VOXELOTOR
     Indication: Sickle cell anaemia with crisis
     Dosage: 1500 MG, 1X/DAY (ONCE DAILY ORAL)
     Route: 048
     Dates: start: 202210
  3. OXBRYTA [Suspect]
     Active Substance: VOXELOTOR
     Indication: Cerebrovascular disorder

REACTIONS (5)
  - Cholelithiasis [Unknown]
  - Liver disorder [Unknown]
  - Vomiting [Recovered/Resolved]
  - Nausea [Recovered/Resolved]
  - Product use complaint [Unknown]

NARRATIVE: CASE EVENT DATE: 20221101
